FAERS Safety Report 25477886 (Version 2)
Quarter: 2025Q2

REPORT INFORMATION
  Report Type: Spontaneous
  Country: US (occurrence: US)
  Receive Date: 20250625
  Receipt Date: 20250625
  Transmission Date: 20250717
  Serious: Yes (Other)
  Sender: GILEAD
  Company Number: US-GILEAD-2025-0717801

PATIENT
  Age: 68 Year
  Sex: Male

DRUGS (2)
  1. TRUVADA [Suspect]
     Active Substance: EMTRICITABINE\TENOFOVIR DISOPROXIL FUMARATE
     Indication: HIV infection
     Route: 065
     Dates: start: 2000
  2. STRIBILD [Suspect]
     Active Substance: COBICISTAT\ELVITEGRAVIR\EMTRICITABINE\TENOFOVIR DISOPROXIL FUMARATE
     Indication: HIV infection
     Route: 065
     Dates: start: 2000

REACTIONS (6)
  - Osteoporosis [Not Recovered/Not Resolved]
  - Lumbar vertebral fracture [Unknown]
  - Bone density decreased [Unknown]
  - Cardiac disorder [Unknown]
  - Intervertebral disc disorder [Unknown]
  - Pain [Unknown]

NARRATIVE: CASE EVENT DATE: 20000101
